FAERS Safety Report 9261063 (Version 3)
Quarter: 2014Q1

REPORT INFORMATION
  Report Type: Spontaneous
  Country: US (occurrence: US)
  Receive Date: 20130429
  Receipt Date: 20140228
  Transmission Date: 20141002
  Serious: Yes (Other)
  Sender: FDA-Public Use
  Company Number: US-AMGEN-USASP2012071816

PATIENT
  Age: 32 Year
  Sex: Female
  Weight: 50 kg

DRUGS (5)
  1. SENSIPAR [Suspect]
     Indication: HYPERPARATHYROIDISM
     Dosage: 30 MG, BID
     Route: 048
  2. LISINOPRIL [Concomitant]
     Indication: BLOOD PRESSURE
     Dosage: 40 UNK, BID
     Route: 048
  3. AMLODIPINE [Concomitant]
     Indication: BLOOD PRESSURE
     Dosage: 10 UNK, UNK
     Route: 048
  4. PHOSLO [Concomitant]
     Dosage: 667 UNK, TID
     Route: 048
  5. COREG [Concomitant]
     Indication: BLOOD PRESSURE
     Dosage: 6.25 UNK, BID
     Route: 048

REACTIONS (2)
  - Blood parathyroid hormone increased [Unknown]
  - Nausea [Recovered/Resolved]
